FAERS Safety Report 5943177-9 (Version None)
Quarter: 2008Q4

REPORT INFORMATION
  Report Type: 
  Country: None (occurrence: None)
  Receive Date: 20081106
  Receipt Date: 20081031
  Transmission Date: 20090506
  Serious: Yes (Hospitalization)
  Sender: FDA-Public Use
  Company Number: A0755094A

PATIENT
  Age: 68 Year
  Sex: Male
  Weight: 77.3 kg

DRUGS (4)
  1. AVANDIA [Suspect]
     Indication: TYPE 2 DIABETES MELLITUS
     Dosage: 8MG PER DAY
     Route: 048
     Dates: start: 20031120, end: 20070617
  2. GLYBURIDE [Concomitant]
  3. ZOCOR [Concomitant]
  4. METOPROLOL TARTRATE [Concomitant]

REACTIONS (9)
  - ANXIETY [None]
  - CARDIAC DISORDER [None]
  - CEREBROVASCULAR ACCIDENT [None]
  - CHEST PAIN [None]
  - DEPRESSION [None]
  - DIZZINESS [None]
  - MENTAL DISORDER [None]
  - MYOCARDIAL INFARCTION [None]
  - VISION BLURRED [None]
